FAERS Safety Report 14371874 (Version 13)
Quarter: 2019Q3

REPORT INFORMATION
  Report Type: Spontaneous
  Country: CA (occurrence: CA)
  Receive Date: 20180110
  Receipt Date: 20190926
  Transmission Date: 20191004
  Serious: Yes (Other)
  Sender: FDA-Public Use
  Company Number: CA-CELLTRION INC.-2017CA008655

PATIENT

DRUGS (23)
  1. INFLECTRA [Suspect]
     Active Substance: INFLIXIMAB-DYYB
     Dosage: 340 MG, 0, 2, 6, THEN EVERY 8 WEEKS
     Route: 042
     Dates: start: 20180102, end: 20180102
  2. PREDNISONE. [Concomitant]
     Active Substance: PREDNISONE
     Dosage: 20 MG, 2X/DAY
     Route: 048
     Dates: start: 20170215
  3. GAVISCON /00237601/ [Concomitant]
     Active Substance: ALUMINUM HYDROXIDE\MAGNESIUM CARBONATE
     Dosage: UNK
     Route: 065
  4. INFLECTRA [Suspect]
     Active Substance: INFLIXIMAB-DYYB
     Dosage: 440 MG, EVERY 8 WEEKS
     Route: 042
     Dates: start: 20190321, end: 20190321
  5. INFLECTRA [Suspect]
     Active Substance: INFLIXIMAB-DYYB
     Dosage: 440 MG, EVERY 8 WEEKS
     Route: 042
     Dates: start: 20190711, end: 20190711
  6. MARIJUANA [Concomitant]
     Active Substance: CANNABIS SATIVA SUBSP. INDICA TOP
     Dosage: UNK, DAILY
     Route: 065
  7. DILTIAZEM AN [Concomitant]
     Dosage: BID(2X/DAY)/TID (3X/DAY)
  8. CLONAZEPAM. [Concomitant]
     Active Substance: CLONAZEPAM
     Dosage: UNK
     Route: 065
  9. PREDNISONE. [Concomitant]
     Active Substance: PREDNISONE
     Dosage: 40 MG, 1X/DAY
     Route: 048
     Dates: start: 20170215
  10. INFLECTRA [Suspect]
     Active Substance: INFLIXIMAB-DYYB
     Dosage: 440 MG, EVERY 8 WEEKS
     Route: 042
     Dates: start: 20180814, end: 20180814
  11. INFLECTRA [Suspect]
     Active Substance: INFLIXIMAB-DYYB
     Dosage: UNK
     Route: 042
     Dates: start: 20190125, end: 20190125
  12. INFLECTRA [Suspect]
     Active Substance: INFLIXIMAB-DYYB
     Dosage: 440 MG, EVERY 8 WEEKS
     Route: 042
     Dates: start: 20190916
  13. METRONIDAZOLE. [Concomitant]
     Active Substance: METRONIDAZOLE
     Dosage: 500 MG, 3X/DAY
     Route: 048
     Dates: start: 201703
  14. TOPICAL DILTIAZEM [Concomitant]
     Dosage: 100 MG, 2-3/ DAY
     Route: 065
  15. INFLECTRA [Suspect]
     Active Substance: INFLIXIMAB-DYYB
     Dosage: 440 MG, EVERY 8 WEEKS
     Route: 042
     Dates: start: 20180618, end: 20180618
  16. INFLECTRA [Suspect]
     Active Substance: INFLIXIMAB-DYYB
     Dosage: UNK
     Route: 042
     Dates: start: 20181129, end: 20181129
  17. INFLECTRA [Suspect]
     Active Substance: INFLIXIMAB-DYYB
     Dosage: 440 MG, EVERY 8 WEEKS
     Route: 042
     Dates: start: 20190517, end: 20190517
  18. INFLECTRA [Suspect]
     Active Substance: INFLIXIMAB-DYYB
     Indication: CROHN^S DISEASE
     Dosage: 300 MG, 0, 2, 6, THEN EVERY 8 WEEKS
     Route: 042
     Dates: start: 20170320, end: 20171101
  19. INFLECTRA [Suspect]
     Active Substance: INFLIXIMAB-DYYB
     Dosage: 440 MG, EVERY 8 WEEKS
     Route: 042
     Dates: start: 20180227, end: 20180227
  20. SEROQUEL [Concomitant]
     Active Substance: QUETIAPINE FUMARATE
     Dosage: UNK
     Route: 065
  21. INFLECTRA [Suspect]
     Active Substance: INFLIXIMAB-DYYB
     Dosage: 440 MG, EVERY 8 WEEKS
     Route: 042
     Dates: start: 20180427, end: 20180427
  22. IMURAN [Concomitant]
     Active Substance: AZATHIOPRINE
     Dosage: 50 MG, DAILY
     Route: 065
     Dates: start: 20161108
  23. TOPICAL DILTIAZEM [Concomitant]
     Dosage: 100 MG, 2-3/ DAY
     Route: 061

REACTIONS (8)
  - Muscle rupture [Unknown]
  - Lip blister [Unknown]
  - Haematochezia [Unknown]
  - Pharyngitis streptococcal [Unknown]
  - Arthralgia [Not Recovered/Not Resolved]
  - Infection [Recovered/Resolved]
  - Condition aggravated [Recovering/Resolving]
  - Weight decreased [Recovered/Resolved]

NARRATIVE: CASE EVENT DATE: 2017
